FAERS Safety Report 11860173 (Version 1)
Quarter: 2015Q4

REPORT INFORMATION
  Report Type: Spontaneous
  Country: US (occurrence: US)
  Receive Date: 20151222
  Receipt Date: 20151222
  Transmission Date: 20160305
  Serious: Yes (Other)
  Sender: FDA-Public Use
  Company Number: US-BAYER-2015-490899

PATIENT
  Sex: Female

DRUGS (1)
  1. ALKA-SELTZER PLUS COLD FORMULA [Suspect]
     Active Substance: ASPIRIN\CHLORPHENIRAMINE MALEATE\PHENYLEPHRINE BITARTRATE
     Indication: MALAISE
     Dosage: UNK, PRN (WHEN EVER GET SICK)

REACTIONS (2)
  - Drug dependence [None]
  - Product use issue [None]
